FAERS Safety Report 16339249 (Version 2)
Quarter: 2019Q2

REPORT INFORMATION
  Report Type: Report from Study
  Country: IT (occurrence: IT)
  Receive Date: 20190521
  Receipt Date: 20190613
  Transmission Date: 20190711
  Serious: Yes (Other)
  Sender: FDA-Public Use
  Company Number: IT-MYLANLABS-2019M1046951

PATIENT
  Age: 88 Year
  Sex: Female

DRUGS (2)
  1. MODURETIC 5-50 [Suspect]
     Active Substance: AMILORIDE HYDROCHLORIDE\HYDROCHLOROTHIAZIDE
     Indication: HYPERTENSION
     Dosage: UNK
     Route: 048
     Dates: end: 20181001
  2. QUETIAPINE. [Suspect]
     Active Substance: QUETIAPINE
     Indication: BIPOLAR DISORDER
     Dosage: UNK
     Route: 048

REACTIONS (2)
  - Confusional state [Recovering/Resolving]
  - Hypotension [Recovering/Resolving]

NARRATIVE: CASE EVENT DATE: 20181001
